FAERS Safety Report 6916697-8 (Version None)
Quarter: 2010Q3

REPORT INFORMATION
  Report Type: 
  Country: None (occurrence: None)
  Receive Date: 20100810
  Receipt Date: 20100802
  Transmission Date: 20110219
  Serious: Yes (Hospitalization, Other)
  Sender: FDA-Public Use
  Company Number: US-B.I. PHARMACEUTICALS,INC./RIDGEFIELD-2010-DE-04158GD

PATIENT
  Age: 52 Year
  Sex: Female

DRUGS (15)
  1. CLONIDINE [Suspect]
     Indication: HYPERTENSION
     Dosage: 600 MCG
  2. CLONIDINE [Suspect]
     Indication: HYPERTENSIVE CRISIS
     Dosage: 200 MCG
     Route: 048
  3. CLONIDINE [Suspect]
     Dosage: 100 MCG
     Route: 048
  4. METOPROLOL [Suspect]
     Indication: HYPERTENSION
     Dosage: 400 MG
  5. METOPROLOL [Suspect]
     Indication: HYPERTENSIVE CRISIS
     Dosage: 200 MG
     Route: 048
  6. METOPROLOL [Suspect]
     Dosage: 200 MG
     Route: 048
  7. DILTIAZEM [Suspect]
     Indication: HYPERTENSION
     Dosage: 180 MG
  8. DILTIAZEM [Suspect]
     Indication: HYPERTENSIVE CRISIS
     Dosage: 180 MG
     Route: 048
  9. NIFEDIPINE [Suspect]
     Indication: HYPERTENSIVE CRISIS
     Dosage: 60 MG
     Route: 048
  10. LABETALOL HCL [Suspect]
     Indication: HYPERTENSIVE CRISIS
     Dosage: 20 MG
     Route: 042
  11. HYDRALAZINE HCL [Suspect]
     Indication: HYPERTENSION
     Dosage: 30 MG
  12. HYDRALAZINE HCL [Suspect]
     Indication: HYPERTENSIVE CRISIS
     Dosage: 10 MG
     Route: 048
  13. HYDRALAZINE HCL [Suspect]
     Dosage: 30 MG
     Route: 042
  14. HYDRALAZINE HCL [Suspect]
     Dosage: 10 MG
     Route: 048
  15. LOPINAVIR/RITONAVIR [Suspect]
     Indication: HIV INFECTION
     Dosage: STRENGTH: 200/50 MG; DAILY DOSE: 800/200 MG
     Route: 048

REACTIONS (7)
  - ATRIOVENTRICULAR BLOCK FIRST DEGREE [None]
  - ATRIOVENTRICULAR DISSOCIATION [None]
  - COMA [None]
  - CONFUSIONAL STATE [None]
  - HYPERTENSIVE CRISIS [None]
  - HYPOTENSION [None]
  - MULTIPLE DRUG OVERDOSE [None]
